FAERS Safety Report 8596347 (Version 5)
Quarter: 2014Q1

REPORT INFORMATION
  Report Type: Spontaneous
  Country: US (occurrence: US)
  Receive Date: 20120605
  Receipt Date: 20140127
  Transmission Date: 20141002
  Serious: Yes (Disabling)
  Sender: FDA-Public Use
  Company Number: US-ASTRAZENECA-2012SE35587

PATIENT
  Age: 36 Year
  Sex: Male
  Weight: 175.5 kg

DRUGS (18)
  1. NEXIUM [Suspect]
     Route: 048
  2. ATENOLOL [Concomitant]
  3. ATENOLOL [Concomitant]
     Route: 048
     Dates: start: 20120216
  4. AMITRIPTYLINE HCL [Concomitant]
  5. HYDROXZINE HCL [Concomitant]
  6. GABAPENTIN [Concomitant]
  7. GEMFIBROZIL [Concomitant]
  8. RANITIDINE [Concomitant]
  9. FLUTICASONE [Concomitant]
  10. BENZTROPIN [Concomitant]
  11. IBUPROFEN [Concomitant]
  12. TRAZODONE [Concomitant]
  13. NEOMYCIN [Concomitant]
  14. TRAMADOL [Concomitant]
     Dates: start: 20110120
  15. LORATADINE [Concomitant]
     Dates: start: 20101230
  16. GEODON [Concomitant]
     Dates: start: 20110804
  17. GEODON [Concomitant]
  18. LISINOPRIL [Concomitant]
     Dates: start: 20130531

REACTIONS (4)
  - Accident at work [Unknown]
  - Osteoporosis [Unknown]
  - Multiple fractures [Unknown]
  - Ankle fracture [Unknown]
